FAERS Safety Report 14839132 (Version 2)
Quarter: 2025Q3

REPORT INFORMATION
  Report Type: Spontaneous
  Country: EU (occurrence: EU)
  Receive Date: 20180502
  Receipt Date: 20250808
  Transmission Date: 20251021
  Serious: Yes (Hospitalization)
  Sender: MYLAN
  Company Number: None

PATIENT
  Age: 19 Year
  Sex: Male

DRUGS (16)
  1. LYRICA [Suspect]
     Active Substance: PREGABALIN
     Indication: Product used for unknown indication
  2. LYRICA [Suspect]
     Active Substance: PREGABALIN
     Route: 048
  3. LYRICA [Suspect]
     Active Substance: PREGABALIN
     Route: 048
  4. LYRICA [Suspect]
     Active Substance: PREGABALIN
  5. COCAINE [Suspect]
     Active Substance: COCAINE
     Indication: Product used for unknown indication
     Dates: start: 20180312, end: 20180312
  6. COCAINE [Suspect]
     Active Substance: COCAINE
     Route: 055
     Dates: start: 20180312, end: 20180312
  7. COCAINE [Suspect]
     Active Substance: COCAINE
     Route: 055
     Dates: start: 20180312, end: 20180312
  8. COCAINE [Suspect]
     Active Substance: COCAINE
     Dates: start: 20180312, end: 20180312
  9. METHAMPHETAMINE [Suspect]
     Active Substance: METHAMPHETAMINE
     Indication: Product used for unknown indication
     Dates: start: 20180312, end: 20180312
  10. METHAMPHETAMINE [Suspect]
     Active Substance: METHAMPHETAMINE
     Route: 065
     Dates: start: 20180312, end: 20180312
  11. METHAMPHETAMINE [Suspect]
     Active Substance: METHAMPHETAMINE
     Route: 065
     Dates: start: 20180312, end: 20180312
  12. METHAMPHETAMINE [Suspect]
     Active Substance: METHAMPHETAMINE
     Dates: start: 20180312, end: 20180312
  13. ALCOHOL [Suspect]
     Active Substance: ALCOHOL
     Indication: Product used for unknown indication
     Dates: start: 20180312, end: 20180312
  14. ALCOHOL [Suspect]
     Active Substance: ALCOHOL
     Route: 048
     Dates: start: 20180312, end: 20180312
  15. ALCOHOL [Suspect]
     Active Substance: ALCOHOL
     Route: 048
     Dates: start: 20180312, end: 20180312
  16. ALCOHOL [Suspect]
     Active Substance: ALCOHOL
     Dates: start: 20180312, end: 20180312

REACTIONS (4)
  - Somnolence [Recovered/Resolved]
  - Drug dependence [Not Recovered/Not Resolved]
  - Intentional overdose [Recovered/Resolved]
  - Product used for unknown indication [Not Recovered/Not Resolved]
